FAERS Safety Report 13074126 (Version 1)
Quarter: 2016Q4

REPORT INFORMATION
  Report Type: Spontaneous
  Country: CN (occurrence: CN)
  Receive Date: 20161229
  Receipt Date: 20161229
  Transmission Date: 20170207
  Serious: Yes (Other)
  Sender: FDA-Public Use
  Company Number: CN-SA-2016SA235043

PATIENT
  Age: 62 Year
  Sex: Male
  Weight: 65 kg

DRUGS (3)
  1. GLUCOSE INJECTION [Concomitant]
     Indication: VEHICLE SOLUTION USE
     Route: 041
     Dates: start: 20160812, end: 20160812
  2. GLUCOSE INJECTION [Concomitant]
     Indication: CHEMOTHERAPY
     Route: 041
     Dates: start: 20160812, end: 20160812
  3. ELOXATIN [Suspect]
     Active Substance: OXALIPLATIN
     Indication: CHEMOTHERAPY
     Route: 041
     Dates: start: 20160812, end: 20160812

REACTIONS (1)
  - Bone marrow failure [Recovering/Resolving]

NARRATIVE: CASE EVENT DATE: 20160813
